FAERS Safety Report 9846631 (Version 1)
Quarter: 2014Q1

REPORT INFORMATION
  Report Type: Report from Study
  Country: AU (occurrence: AU)
  Receive Date: 20140127
  Receipt Date: 20140127
  Transmission Date: 20141002
  Serious: Yes (Death)
  Sender: FDA-Public Use
  Company Number: AU-GLAXOSMITHKLINE-B0962751A

PATIENT
  Sex: 0

DRUGS (2)
  1. DABRAFENIB [Suspect]
     Indication: METASTATIC MALIGNANT MELANOMA
  2. TRAMETINIB [Suspect]
     Indication: METASTATIC MALIGNANT MELANOMA

REACTIONS (1)
  - Death [Fatal]
